FAERS Safety Report 19435790 (Version 1)
Quarter: 2021Q2

REPORT INFORMATION
  Report Type: Spontaneous
  Country: US (occurrence: US)
  Receive Date: 20210618
  Receipt Date: 20210618
  Transmission Date: 20210717
  Serious: Yes (Other)
  Sender: FDA-Public Use
  Company Number: US-ASTRAZENECA-2021A520926

PATIENT
  Sex: Male
  Weight: 63.5 kg

DRUGS (3)
  1. FARXIGA [Suspect]
     Active Substance: DAPAGLIFLOZIN PROPANEDIOL
     Indication: DIABETES MELLITUS
     Route: 048
     Dates: end: 20210609
  2. ONGLYZA [Suspect]
     Active Substance: SAXAGLIPTIN HYDROCHLORIDE
     Indication: BLOOD GLUCOSE ABNORMAL
     Route: 048
  3. ONGLYZA [Suspect]
     Active Substance: SAXAGLIPTIN HYDROCHLORIDE
     Indication: DIABETES MELLITUS
     Route: 048

REACTIONS (15)
  - Loose tooth [Unknown]
  - Weight decreased [Unknown]
  - Insomnia [Not Recovered/Not Resolved]
  - Gingival swelling [Recovered/Resolved]
  - Pollakiuria [Not Recovered/Not Resolved]
  - Pancreatitis [Unknown]
  - Dizziness [Not Recovered/Not Resolved]
  - Diabetes mellitus inadequate control [Unknown]
  - Polydipsia [Not Recovered/Not Resolved]
  - Dehydration [Not Recovered/Not Resolved]
  - Gingivitis [Recovered/Resolved with Sequelae]
  - Tooth loss [Unknown]
  - Fatigue [Unknown]
  - Vertigo [Not Recovered/Not Resolved]
  - Blood glucose fluctuation [Not Recovered/Not Resolved]
